FAERS Safety Report 25586327 (Version 4)
Quarter: 2025Q4

REPORT INFORMATION
  Report Type: Spontaneous
  Country: US (occurrence: US)
  Receive Date: 20250721
  Receipt Date: 20251003
  Transmission Date: 20260118
  Serious: Yes (Hospitalization)
  Sender: ARDELYX
  Company Number: US-ARDELYX-2025ARDX005292

PATIENT
  Sex: Male

DRUGS (2)
  1. XPHOZAH [Suspect]
     Active Substance: TENAPANOR HYDROCHLORIDE
     Indication: Hyperphosphataemia
     Dosage: UNK , TID
     Route: 065
     Dates: start: 2025
  2. XPHOZAH [Suspect]
     Active Substance: TENAPANOR HYDROCHLORIDE
     Dosage: UNK, BID
     Route: 065
     Dates: start: 2025

REACTIONS (12)
  - Malaise [Recovered/Resolved]
  - Urinary tract infection [Not Recovered/Not Resolved]
  - Bladder catheterisation [Not Recovered/Not Resolved]
  - Abdominal mass [Unknown]
  - Illness [Recovered/Resolved]
  - Renal disorder [Not Recovered/Not Resolved]
  - Hernia [Not Recovered/Not Resolved]
  - Decreased appetite [Unknown]
  - Rehabilitation therapy [Unknown]
  - Overdose [Unknown]
  - Inappropriate schedule of product administration [Unknown]
  - Intentional dose omission [Unknown]

NARRATIVE: CASE EVENT DATE: 20250101
